FAERS Safety Report 10598699 (Version 1)
Quarter: 2014Q4

REPORT INFORMATION
  Report Type: Spontaneous
  Country: US (occurrence: US)
  Receive Date: 20141121
  Receipt Date: 20141121
  Transmission Date: 20150529
  Serious: Yes (Hospitalization, Disabling, Other)
  Sender: FDA-Public Use
  Company Number: US-ABBVIE-14P-163-1309289-00

PATIENT
  Sex: Male

DRUGS (1)
  1. ANDROGEL [Suspect]
     Active Substance: TESTOSTERONE
     Indication: BLOOD TESTOSTERONE DECREASED
     Route: 065
     Dates: start: 201301

REACTIONS (12)
  - Pulmonary embolism [Unknown]
  - Anxiety [Unknown]
  - Deep vein thrombosis [Unknown]
  - Pain [Unknown]
  - Impaired work ability [Unknown]
  - Thrombosis [Unknown]
  - Economic problem [Unknown]
  - Wheelchair user [Unknown]
  - Physical disability [Unknown]
  - Disability [Unknown]
  - Injury [Unknown]
  - Emotional distress [Unknown]

NARRATIVE: CASE EVENT DATE: 201406
